FAERS Safety Report 9246610 (Version 1)
Quarter: 2013Q2

REPORT INFORMATION
  Report Type: Spontaneous
  Country: AR (occurrence: AR)
  Receive Date: 20130422
  Receipt Date: 20130422
  Transmission Date: 20140414
  Serious: Yes (Death)
  Sender: FDA-Public Use
  Company Number: AR-ROCHE-1216646

PATIENT
  Sex: Male
  Weight: 74 kg

DRUGS (2)
  1. AVASTIN [Suspect]
     Indication: HEPATIC CANCER
     Route: 042
     Dates: start: 20121001
  2. TACROLIMUS [Concomitant]
     Indication: LIVER TRANSPLANT

REACTIONS (1)
  - Septic shock [Fatal]
